FAERS Safety Report 17508807 (Version 2)
Quarter: 2020Q1

REPORT INFORMATION
  Report Type: Report from Study
  Country: CH (occurrence: CH)
  Receive Date: 20200306
  Receipt Date: 20200318
  Transmission Date: 20200409
  Serious: Yes (Congenital Anomaly)
  Sender: FDA-Public Use
  Company Number: CH-PFIZER INC-2020097009

PATIENT

DRUGS (6)
  1. LISINOPRIL. [Suspect]
     Active Substance: LISINOPRIL
     Dosage: UNK
     Route: 064
  2. ATENOLOL. [Suspect]
     Active Substance: ATENOLOL
     Dosage: UNK
     Route: 064
  3. LOSARTAN POTASSIUM. [Suspect]
     Active Substance: LOSARTAN POTASSIUM
     Dosage: UNK
     Route: 064
  4. HYDROCHLOROTHIAZIDE. [Suspect]
     Active Substance: HYDROCHLOROTHIAZIDE
     Dosage: UNK
     Route: 064
  5. SPIRONOLACTONE. [Suspect]
     Active Substance: SPIRONOLACTONE
     Dosage: UNK
     Route: 064
  6. ACETYLSALICYLIC ACID [Suspect]
     Active Substance: ASPIRIN
     Dosage: UNK
     Route: 064

REACTIONS (1)
  - Congenital renal disorder [Unknown]
